FAERS Safety Report 20042602 (Version 1)
Quarter: 2021Q4

REPORT INFORMATION
  Report Type: Spontaneous
  Country: US (occurrence: US)
  Receive Date: 20211108
  Receipt Date: 20211108
  Transmission Date: 20220303
  Serious: Yes (Hospitalization, Other)
  Sender: FDA-Public Use
  Company Number: US-MLMSERVICE-20211021-3174637-1

PATIENT

DRUGS (2)
  1. DOXYCYCLINE [Suspect]
     Active Substance: DOXYCYCLINE
     Indication: Urethritis ureaplasmal
     Dosage: 1 DOSAGE FORM
     Route: 065
  2. IBUPROFEN [Concomitant]
     Active Substance: IBUPROFEN
     Indication: Product used for unknown indication
     Dosage: LESS THAN 4 TO 5 DOSES MONTHLY
     Route: 065

REACTIONS (8)
  - Gastrointestinal toxicity [Recovered/Resolved]
  - Gastric perforation [Recovered/Resolved]
  - Gastric ulcer [Recovered/Resolved]
  - Pneumoperitoneum [Recovered/Resolved]
  - Abdominal pain upper [Recovered/Resolved]
  - Intra-abdominal fluid collection [Recovered/Resolved]
  - Pelvic fluid collection [Recovered/Resolved]
  - Intentional product use issue [Recovered/Resolved]
